FAERS Safety Report 8943282 (Version 1)
Quarter: 2012Q4

REPORT INFORMATION
  Report Type: 
  Country: JP (occurrence: JP)
  Receive Date: 20121204
  Receipt Date: 20121204
  Transmission Date: 20130627
  Serious: Yes (Other)
  Sender: FDA-Public Use
  Company Number: JP-ELI_LILLY_AND_COMPANY-JP201211002661

PATIENT
  Age: 69 Year
  Sex: Male

DRUGS (3)
  1. ALIMTA [Suspect]
     Indication: NON-SMALL CELL LUNG CANCER
     Dosage: 500 mg/m2, other
     Route: 042
     Dates: start: 20110911, end: 20121104
  2. FOLIC ACID [Concomitant]
     Route: 048
  3. VITAMIN B12 [Concomitant]

REACTIONS (1)
  - Volvulus [Recovered/Resolved]
